FAERS Safety Report 22634878 (Version 3)
Quarter: 2023Q4

REPORT INFORMATION
  Report Type: Spontaneous
  Country: US (occurrence: US)
  Receive Date: 20230623
  Receipt Date: 20231009
  Transmission Date: 20240110
  Serious: No
  Sender: FDA-Public Use
  Company Number: US-SA-SAC20230620001318

PATIENT
  Sex: Male

DRUGS (2)
  1. DUPIXENT [Suspect]
     Active Substance: DUPILUMAB
     Indication: Asthma
     Dosage: 300MG; QOW
     Route: 058
     Dates: start: 20230621
  2. MONTELUKAST [Concomitant]
     Active Substance: MONTELUKAST SODIUM
     Dosage: UNK

REACTIONS (7)
  - Discomfort [Unknown]
  - Sleep disorder [Recovering/Resolving]
  - Asthma [Unknown]
  - Impaired quality of life [Recovering/Resolving]
  - Dry eye [Unknown]
  - Eye irritation [Unknown]
  - Product use in unapproved indication [Unknown]
